FAERS Safety Report 22062603 (Version 3)
Quarter: 2023Q1

REPORT INFORMATION
  Report Type: Report from Study
  Country: US (occurrence: US)
  Receive Date: 20230306
  Receipt Date: 20230327
  Transmission Date: 20230418
  Serious: Yes (Other)
  Sender: FDA-Public Use
  Company Number: US-ABBVIE-4327979

PATIENT
  Age: 75 Year
  Sex: Male

DRUGS (3)
  1. LUPRON [Suspect]
     Active Substance: LEUPROLIDE ACETATE
     Indication: Product used for unknown indication
     Route: 065
     Dates: start: 20200301
  2. JARDIANCE [Concomitant]
     Active Substance: EMPAGLIFLOZIN
     Indication: Product used for unknown indication
  3. METFORMIN [Concomitant]
     Active Substance: METFORMIN HYDROCHLORIDE
     Indication: Product used for unknown indication

REACTIONS (14)
  - Prostate cancer metastatic [Not Recovered/Not Resolved]
  - Diabetes mellitus [Unknown]
  - Nephrolithiasis [Unknown]
  - Hepatic steatosis [Not Recovered/Not Resolved]
  - Diabetes mellitus [Recovered/Resolved]
  - Injection site pain [Unknown]
  - Hot flush [Unknown]
  - Neoplasm malignant [Unknown]
  - Exercise lack of [Unknown]
  - Poor quality sleep [Unknown]
  - Blood pressure increased [Unknown]
  - Pain in extremity [Unknown]
  - Diarrhoea [Unknown]
  - Joint stiffness [Unknown]

NARRATIVE: CASE EVENT DATE: 20200301
